FAERS Safety Report 6706331-4 (Version None)
Quarter: 2010Q2

REPORT INFORMATION
  Report Type: 
  Country: None (occurrence: None)
  Receive Date: 20100430
  Receipt Date: 20100430
  Transmission Date: 20101027
  Serious: Yes (Hospitalization)
  Sender: FDA-Public Use
  Company Number: None

PATIENT
  Age: 52 Year
  Sex: Female
  Weight: 63.8 kg

DRUGS (2)
  1. DOXIL [Suspect]
     Indication: OVARIAN CANCER
     Dosage: 52 MG EVERY 21 DAYS IV DRIP
     Route: 041
     Dates: start: 20100326, end: 20100416
  2. AVASTIN [Suspect]
     Indication: OVARIAN CANCER
     Dosage: 960 MG Q 21 DAYS CY 2-8 IV DRIP
     Route: 041
     Dates: start: 20100416, end: 20100416

REACTIONS (5)
  - HEADACHE [None]
  - MALIGNANT PLEURAL EFFUSION [None]
  - NAUSEA [None]
  - URINARY TRACT INFECTION [None]
  - VOMITING [None]
